FAERS Safety Report 9888345 (Version 2)
Quarter: 2014Q1

REPORT INFORMATION
  Report Type: Spontaneous
  Country: US (occurrence: US)
  Receive Date: 20140211
  Receipt Date: 20140303
  Transmission Date: 20141002
  Serious: Yes (Death, Hospitalization)
  Sender: FDA-Public Use
  Company Number: US-AMGEN-USASP2014008405

PATIENT
  Age: 85 Year
  Sex: Female
  Weight: 40.37 kg

DRUGS (15)
  1. PROLIA [Suspect]
     Indication: OSTEOPOROSIS POSTMENOPAUSAL
     Dosage: 60 MG, Q6MO
     Route: 065
     Dates: start: 201201, end: 20130822
  2. CALCIUM + VIT D [Concomitant]
     Dosage: 2000-2300, EVERYDAY, QHS
     Route: 048
     Dates: start: 20121106
  3. DONEPEZIL [Concomitant]
     Indication: DEMENTIA
     Dosage: 10 MG, QHS, EVERYDAY, 2000-2300, QD
     Route: 048
     Dates: start: 20121106
  4. DULCOLAX                           /00064401/ [Concomitant]
     Indication: CONSTIPATION
     Dosage: 10 MG, PRN
     Route: 054
     Dates: start: 20121106
  5. MELATONIN [Concomitant]
     Indication: INSOMNIA
     Dosage: 3 MG, 2000-2300, QHS
     Route: 048
     Dates: start: 20121106
  6. MIRALAX                            /00754501/ [Concomitant]
     Indication: CONSTIPATION
     Dosage: 17 G, QD
     Route: 048
     Dates: start: 20130219
  7. MOM [Concomitant]
     Indication: CONSTIPATION
     Dosage: 30 CC, PRN
     Dates: start: 20121106
  8. NAMENDA [Concomitant]
     Indication: DEMENTIA
     Dosage: 10 MG, BID, EVERYDAY
     Route: 048
     Dates: start: 20121106
  9. OXYGEN [Concomitant]
     Indication: OXYGEN SATURATION DECREASED
     Dosage: 2 LIT/MIN, INHALATION, PRN
     Dates: start: 20121106
  10. TRAMADOL HCL [Concomitant]
     Indication: PAIN
     Dosage: 50 MG, Q6H, PRN
     Route: 048
     Dates: start: 20131106
  11. RISPERDAL [Concomitant]
     Dosage: 0.5 MG, QD, 2000-2300
     Route: 048
     Dates: start: 20130611
  12. ASPIRIN [Concomitant]
     Indication: PROPHYLAXIS
     Dosage: 81 MG, QD
     Route: 048
     Dates: start: 20121106
  13. LEVOTHYROXINE SODIUM [Concomitant]
     Indication: HYPOTHYROIDISM
     Dosage: 10 MUG, QD, QHS, 2000-2300
     Route: 048
     Dates: start: 20121106
  14. DUONEB [Concomitant]
     Indication: COUGH
     Dosage: 0.5-2.5 3 MG/3ML, QID, PRN
     Dates: start: 20121106
  15. DUONEB [Concomitant]
     Indication: WHEEZING

REACTIONS (1)
  - Dementia [Fatal]
